FAERS Safety Report 5370865-8 (Version None)
Quarter: 2007Q2

REPORT INFORMATION
  Report Type: 
  Country: None (occurrence: None)
  Receive Date: 20070614
  Receipt Date: 20070413
  Transmission Date: 20071010
  Serious: No
  Sender: FDA-Public Use
  Company Number: BDI-009395

PATIENT
  Age: 43 Year
  Sex: Female
  Weight: 72.73 kg

DRUGS (2)
  1. MULTIHANCE [Suspect]
     Indication: NUCLEAR MAGNETIC RESONANCE IMAGING
     Dosage: 15 ML ONCE IV
     Route: 042
     Dates: start: 20070412, end: 20070412
  2. MULTIHANCE [Suspect]
     Indication: UTERINE LEIOMYOMA
     Dosage: 15 ML ONCE IV
     Route: 042
     Dates: start: 20070412, end: 20070412

REACTIONS (1)
  - HYPERSENSITIVITY [None]
